FAERS Safety Report 20858089 (Version 1)
Quarter: 2022Q2

REPORT INFORMATION
  Report Type: Spontaneous
  Country: CZ (occurrence: None)
  Receive Date: 20220521
  Receipt Date: 20220521
  Transmission Date: 20220721
  Serious: Yes (Death, Life-Threatening, Hospitalization, Other)
  Sender: FDA-Public Use
  Company Number: CZ-MICRO LABS LIMITED-ML2022-02127

PATIENT
  Age: 44 Year
  Sex: Male

DRUGS (1)
  1. VERAPAMIL HYDROCHLORIDE [Suspect]
     Active Substance: VERAPAMIL HYDROCHLORIDE
     Dosage: HAD A LARGE QUANTITY OF TABLETS OF VERAPAMIL 240MG (EXCEEDED MORE THAN SEVEN TIMES THE LETHAL DOSE)
     Route: 048

REACTIONS (10)
  - Cardiac arrest [Fatal]
  - Intentional overdose [Unknown]
  - Suicide attempt [Unknown]
  - Nodal rhythm [Unknown]
  - Toxicity to various agents [Unknown]
  - Alkalosis hypochloraemic [Unknown]
  - Vomiting [Unknown]
  - Somnolence [Unknown]
  - Hypotension [Not Recovered/Not Resolved]
  - Bradycardia [Not Recovered/Not Resolved]
